FAERS Safety Report 8327891-6 (Version None)
Quarter: 2012Q2

REPORT INFORMATION
  Report Type: 
  Country: None (occurrence: None)
  Receive Date: 20120430
  Receipt Date: 20120418
  Transmission Date: 20120825
  Serious: Yes (Death)
  Sender: FDA-Public Use
  Company Number: UTC-017295

PATIENT
  Age: 3 Year
  Sex: Female
  Weight: 10 kg

DRUGS (5)
  1. MILRINONE LACTATE [Suspect]
     Indication: PRODUCT USED FOR UNKNOWN INDICATION
  2. DIURETICS (DIURETICS) [Concomitant]
  3. ASPIRIN [Concomitant]
  4. REVATIO [Concomitant]
  5. REMODULIN [Suspect]
     Indication: PULMONARY HYPERTENSION
     Dosage: 93.6 UG/KG (0.065 UG/KG, 1 IN 1 MIN), INTRAVENOUS
     Route: 042
     Dates: start: 20090324

REACTIONS (1)
  - CARDIAC FAILURE [None]
